FAERS Safety Report 16941464 (Version 1)
Quarter: 2019Q4

REPORT INFORMATION
  Report Type: Spontaneous
  Country: US (occurrence: US)
  Receive Date: 20191020
  Receipt Date: 20191020
  Transmission Date: 20200122
  Serious: Yes (Other)
  Sender: FDA-Public Use
  Company Number: None

PATIENT
  Age: 23 Year
  Sex: Female
  Weight: 82.8 kg

DRUGS (1)
  1. TIOCONAZOLE 1 DAY [Suspect]
     Active Substance: TIOCONAZOLE
     Indication: FUNGAL INFECTION
     Dosage: ?          QUANTITY:1 SUPPOSITORY(IES);?
     Route: 067

REACTIONS (6)
  - Hypersensitivity [None]
  - Application site hypersensitivity [None]
  - Pruritus [None]
  - Vulvovaginal discomfort [None]
  - Burning sensation [None]
  - Vulvovaginal swelling [None]

NARRATIVE: CASE EVENT DATE: 20191019
